FAERS Safety Report 14331123 (Version 1)
Quarter: 2017Q4

REPORT INFORMATION
  Report Type: Spontaneous
  Country: TR (occurrence: TR)
  Receive Date: 20171228
  Receipt Date: 20171228
  Transmission Date: 20180321
  Serious: Yes (Death)
  Sender: FDA-Public Use
  Company Number: TR-UCBSA-2017052663

PATIENT
  Age: 69 Year
  Sex: Male

DRUGS (11)
  1. CLEXAN [Suspect]
     Active Substance: ENOXAPARIN SODIUM
     Indication: HYPOXIC-ISCHAEMIC ENCEPHALOPATHY
     Dosage: UNK
  2. ATROPINE. [Concomitant]
     Active Substance: ATROPINE
     Dosage: 5 MG
  3. ADRENALINE [Concomitant]
     Active Substance: EPINEPHRINE
     Dosage: 10 MG
  4. NOREPINEPHRINE. [Concomitant]
     Active Substance: NOREPINEPHRINE
     Indication: PRODUCT USED FOR UNKNOWN INDICATION
     Dosage: UNK
  5. KLACID [Concomitant]
     Active Substance: CLARITHROMYCIN
     Indication: PRODUCT USED FOR UNKNOWN INDICATION
     Dosage: UNK
  6. KEPPRA [Suspect]
     Active Substance: LEVETIRACETAM
     Indication: HYPOXIC-ISCHAEMIC ENCEPHALOPATHY
     Dosage: UNK
  7. KEPPRA [Suspect]
     Active Substance: LEVETIRACETAM
     Indication: OFF LABEL USE
  8. ROCEPHIN [Concomitant]
     Active Substance: CEFTRIAXONE SODIUM
     Indication: PRODUCT USED FOR UNKNOWN INDICATION
     Dosage: UNK
  9. DOBUTAMINE [Concomitant]
     Active Substance: DOBUTAMINE\DOBUTAMINE HYDROCHLORIDE
     Indication: PRODUCT USED FOR UNKNOWN INDICATION
     Dosage: UNK
  10. ADRENALINE [Concomitant]
     Active Substance: EPINEPHRINE
     Indication: PRODUCT USED FOR UNKNOWN INDICATION
     Dosage: 6 AMPULES
  11. ATROPINE. [Concomitant]
     Active Substance: ATROPINE
     Indication: PRODUCT USED FOR UNKNOWN INDICATION
     Dosage: 4 AMPULES

REACTIONS (2)
  - Death [Fatal]
  - Off label use [Unknown]
